FAERS Safety Report 5418134-1 (Version None)
Quarter: 2007Q3

REPORT INFORMATION
  Report Type: 
  Country: None (occurrence: None)
  Receive Date: 20070817
  Receipt Date: 20070807
  Transmission Date: 20080115
  Serious: Yes (Death, Other)
  Sender: FDA-Public Use
  Company Number: TR-ABBOTT-07P-161-0376985-00

PATIENT
  Age: 26 Day
  Sex: Female
  Weight: 4.5 kg

DRUGS (1)
  1. VALPROATE SODIUM [Suspect]
     Indication: CONVULSION

REACTIONS (4)
  - ANTICONVULSANT DRUG LEVEL INCREASED [None]
  - BRAIN OEDEMA [None]
  - HYPERAMMONAEMIA [None]
  - OVERDOSE [None]
